FAERS Safety Report 6454316-8 (Version None)
Quarter: 2009Q4

REPORT INFORMATION
  Report Type: 
  Country: None (occurrence: None)
  Receive Date: 20091124
  Receipt Date: 20091116
  Transmission Date: 20100525
  Serious: Yes (Other)
  Sender: FDA-Public Use
  Company Number: RO-ROCHE-668863

PATIENT
  Age: 50 Year
  Sex: Female

DRUGS (3)
  1. MYCOPHENOLATE MOFETIL [Suspect]
     Route: 065
     Dates: start: 20070101
  2. TACROLIMUS [Suspect]
     Route: 065
     Dates: start: 20070101
  3. CYCLOSPORINE [Suspect]
     Route: 065
     Dates: start: 20070101

REACTIONS (4)
  - HEPATITIS C [None]
  - NERVOUS SYSTEM DISORDER [None]
  - PANCYTOPENIA [None]
  - RENAL IMPAIRMENT [None]
